FAERS Safety Report 15708896 (Version 2)
Quarter: 2019Q1

REPORT INFORMATION
  Report Type: Spontaneous
  Country: GB (occurrence: GB)
  Receive Date: 20181211
  Receipt Date: 20190318
  Transmission Date: 20190417
  Serious: Yes (Hospitalization, Other)
  Sender: FDA-Public Use
  Company Number: PHHY2016GB160422

PATIENT
  Age: 57 Year
  Sex: Male

DRUGS (2)
  1. CLOZARIL [Suspect]
     Active Substance: CLOZAPINE
     Indication: SCHIZOPHRENIA
     Dosage: UNK
     Route: 048
     Dates: start: 20011002
  2. CIPROFLOX [Suspect]
     Active Substance: CIPROFLOXACIN HYDROCHLORIDE
     Indication: PRODUCT USED FOR UNKNOWN INDICATION
     Dosage: UNK
     Route: 065
     Dates: start: 201811

REACTIONS (12)
  - Full blood count abnormal [Unknown]
  - Electrocardiogram QT prolonged [Unknown]
  - Monocyte count increased [Unknown]
  - Anaemia [Not Recovered/Not Resolved]
  - Chest pain [Unknown]
  - Diabetes mellitus [Unknown]
  - Hypertension [Unknown]
  - Neutrophil count increased [Recovering/Resolving]
  - Rhabdomyolysis [Unknown]
  - Tachycardia [Recovering/Resolving]
  - White blood cell count increased [Recovering/Resolving]
  - Neutrophil count decreased [Recovered/Resolved]

NARRATIVE: CASE EVENT DATE: 20161117
